FAERS Safety Report 13835025 (Version 8)
Quarter: 2017Q4

REPORT INFORMATION
  Report Type: Spontaneous
  Country: BR (occurrence: BR)
  Receive Date: 20170804
  Receipt Date: 20171127
  Transmission Date: 20180320
  Serious: Yes (Hospitalization)
  Sender: FDA-Public Use
  Company Number: BR-PFIZER INC-2017332311

PATIENT
  Age: 71 Year
  Sex: Female

DRUGS (9)
  1. SUTENT [Suspect]
     Active Substance: SUNITINIB MALATE
     Indication: RENAL CANCER METASTATIC
     Dosage: 50 MG, UNK
     Route: 048
     Dates: start: 20170610, end: 2017
  2. SUTENT [Suspect]
     Active Substance: SUNITINIB MALATE
     Dosage: 50MG, TAKING FOR 2 DAYS AND PAUSE 1 DAY
     Route: 048
     Dates: start: 201707, end: 20170914
  3. TEGRETOL [Concomitant]
     Active Substance: CARBAMAZEPINE
     Indication: EPILEPSY
     Dosage: UNK
     Dates: start: 1987
  4. FOLIC ACID. [Concomitant]
     Active Substance: FOLIC ACID
     Indication: RHEUMATIC DISORDER
     Dosage: UNK
     Dates: start: 2014
  5. SUTENT [Suspect]
     Active Substance: SUNITINIB MALATE
     Dosage: 25 MG (1 TABLET PER DAY), 28 STRAIGHT DAYS AND THEN 15 DAYS OF REST
     Route: 048
     Dates: start: 20171004
  6. CHLORDIAZEPOXIDE. [Concomitant]
     Active Substance: CHLORDIAZEPOXIDE
     Indication: RELAXATION THERAPY
     Dosage: UNK
     Dates: start: 201707
  7. LIMBITROL [Concomitant]
     Active Substance: AMITRIPTYLINE\CHLORDIAZEPOXIDE
     Indication: EPILEPSY
     Dosage: UNK
     Dates: start: 1987
  8. DULOXETINE. [Concomitant]
     Active Substance: DULOXETINE
     Indication: DEPRESSION
     Dosage: UNK
     Dates: start: 201708
  9. METHOTREXATE. [Concomitant]
     Active Substance: METHOTREXATE
     Indication: RHEUMATIC DISORDER
     Dosage: UNK
     Dates: start: 2014

REACTIONS (7)
  - Nausea [Recovered/Resolved]
  - Mouth injury [Recovered/Resolved]
  - Diarrhoea [Recovered/Resolved]
  - Ageusia [Not Recovered/Not Resolved]
  - Arrhythmia [Recovered/Resolved]
  - Tongue injury [Recovered/Resolved]
  - Malaise [Recovered/Resolved]

NARRATIVE: CASE EVENT DATE: 2017
